FAERS Safety Report 10475275 (Version 2)
Quarter: 2014Q4

REPORT INFORMATION
  Report Type: Report from Study
  Country: NL (occurrence: NL)
  Receive Date: 20140925
  Receipt Date: 20141021
  Transmission Date: 20150528
  Serious: Yes (Death, Hospitalization, Other)
  Sender: FDA-Public Use
  Company Number: PHHY2014NL121536

PATIENT
  Sex: Male

DRUGS (5)
  1. DEXAMETHASONE. [Concomitant]
     Active Substance: DEXAMETHASONE
     Indication: PRODUCT USED FOR UNKNOWN INDICATION
     Dosage: 0.5 MG, EVERY OTHER 5 DAY
     Route: 065
  2. CARBOPLATIN. [Concomitant]
     Active Substance: CARBOPLATIN
     Indication: PRODUCT USED FOR UNKNOWN INDICATION
     Dosage: UNK
     Route: 065
  3. ETOPOSIDE. [Concomitant]
     Active Substance: ETOPOSIDE
     Indication: PRODUCT USED FOR UNKNOWN INDICATION
     Dosage: UNK
     Route: 065
  4. ZOMETA [Suspect]
     Active Substance: ZOLEDRONIC ACID
     Dosage: UNK
     Route: 065
     Dates: end: 20140920
  5. ZOMETA [Suspect]
     Active Substance: ZOLEDRONIC ACID
     Indication: LUNG CANCER METASTATIC
     Dosage: 4 MG PER 100 ML, ONCE EVERY 4 WEEKS
     Route: 042
     Dates: end: 20140825

REACTIONS (5)
  - Terminal state [Fatal]
  - Malignant neoplasm progression [Unknown]
  - General physical health deterioration [Fatal]
  - Lung cancer metastatic [Unknown]
  - Dyspnoea [Fatal]
